FAERS Safety Report 9126589 (Version 1)
Quarter: 2013Q1

REPORT INFORMATION
  Report Type: Report from Study
  Country: IT (occurrence: IT)
  Receive Date: 20130117
  Receipt Date: 20130117
  Transmission Date: 20140127
  Serious: Yes (Hospitalization, Other)
  Sender: FDA-Public Use
  Company Number: IT-PFIZER INC-2013016092

PATIENT
  Age: 62 Year
  Sex: Male
  Weight: 83 kg

DRUGS (6)
  1. SOMAVERT [Suspect]
     Indication: ACROMEGALY
     Dosage: 10 MG DAILY, 7 INJECTIONS PER WEEK
     Dates: start: 20101001
  2. LANREOTIDE [Concomitant]
     Dosage: UNK
     Dates: start: 20110606
  3. LEVOTHYROXINE [Concomitant]
     Indication: BLOOD THYROID STIMULATING HORMONE DECREASED
     Dosage: UNK
     Route: 048
     Dates: start: 20110506
  4. TESTOSTERONE [Concomitant]
     Indication: FOLLICLE-STIMULATING HORMONE DEFICIENCY
     Dosage: UNK
     Dates: start: 20090925
  5. TESTOSTERONE [Concomitant]
     Indication: LUTEINISING HORMONE DEFICIENCY
  6. URSODEOXYCHOLIC ACID [Concomitant]
     Dosage: UNK
     Route: 048
     Dates: start: 2009

REACTIONS (1)
  - Neoplasm [Recovering/Resolving]
